FAERS Safety Report 11076401 (Version 4)
Quarter: 2015Q3

REPORT INFORMATION
  Report Type: Spontaneous
  Country: JP (occurrence: JP)
  Receive Date: 20150429
  Receipt Date: 20150723
  Transmission Date: 20151125
  Serious: Yes (Hospitalization)
  Sender: FDA-Public Use
  Company Number: JP-JNJFOC-20150421573

PATIENT
  Age: 40 Year
  Sex: Female

DRUGS (8)
  1. REMICADE [Suspect]
     Active Substance: INFLIXIMAB
     Indication: COLITIS ULCERATIVE
     Route: 042
     Dates: start: 201111
  2. PARIET [Concomitant]
     Active Substance: RABEPRAZOLE SODIUM
     Route: 048
  3. REMICADE [Suspect]
     Active Substance: INFLIXIMAB
     Indication: COLITIS ULCERATIVE
     Route: 042
  4. PENTASA [Concomitant]
     Active Substance: MESALAMINE
     Route: 054
  5. SALAZOSULFAPYRIDINE [Concomitant]
     Active Substance: SULFASALAZINE
     Route: 065
  6. IMURAN [Concomitant]
     Active Substance: AZATHIOPRINE
     Route: 048
  7. MESALAZINE [Concomitant]
     Active Substance: MESALAMINE
     Route: 048
  8. ACTONEL [Concomitant]
     Active Substance: RISEDRONATE SODIUM
     Route: 048

REACTIONS (1)
  - Polymyositis [Recovering/Resolving]

NARRATIVE: CASE EVENT DATE: 201212
